FAERS Safety Report 8948295 (Version 1)
Quarter: 2012Q4

REPORT INFORMATION
  Report Type: 
  Country: US (occurrence: US)
  Receive Date: 20121121
  Receipt Date: 20121121
  Transmission Date: 20130627
  Serious: Yes (Death)
  Sender: FDA-Public Use
  Company Number: US-ASTELLAS-1118131

PATIENT
  Sex: Female

DRUGS (4)
  1. TARCEVA [Suspect]
     Indication: MALIGNANT RESPIRATORY TRACT NEOPLASM
     Route: 065
  2. TARCEVA [Suspect]
     Indication: METASTASES TO NERVOUS SYSTEM
  3. TAXOL [Concomitant]
     Route: 065
     Dates: start: 20071221
  4. CARBOPLATIN [Concomitant]
     Route: 065
     Dates: start: 20071221

REACTIONS (1)
  - Death [Fatal]
